FAERS Safety Report 23250957 (Version 1)
Quarter: 2023Q4

REPORT INFORMATION
  Report Type: Spontaneous
  Country: US (occurrence: None)
  Receive Date: 20231201
  Receipt Date: 20231201
  Transmission Date: 20240110
  Serious: Yes (Hospitalization)
  Sender: FDA-Public Use
  Company Number: None

PATIENT
  Age: 80 Year
  Sex: Female
  Weight: 63.9 kg

DRUGS (3)
  1. CARVEDILOL [Suspect]
     Active Substance: CARVEDILOL
     Indication: Hypertension
     Dosage: OTHER QUANTITY : 1 TABLET(S);?FREQUENCY : TWICE A DAY;?
     Route: 048
  2. MINERALS\VITAMINS [Concomitant]
     Active Substance: MINERALS\VITAMINS
  3. calc w d. [Concomitant]

REACTIONS (11)
  - Paraesthesia [None]
  - Muscle twitching [None]
  - Muscle twitching [None]
  - Anxiety [None]
  - Nausea [None]
  - Sleep disorder [None]
  - Fatigue [None]
  - Peripheral coldness [None]
  - Heart rate decreased [None]
  - Blood pressure systolic decreased [None]
  - Blood pressure diastolic increased [None]

NARRATIVE: CASE EVENT DATE: 20230818
